FAERS Safety Report 15858388 (Version 1)
Quarter: 2018Q4

REPORT INFORMATION
  Report Type: Spontaneous
  Country: US (occurrence: US)
  Receive Date: 20181227
  Receipt Date: 20181227
  Transmission Date: 20190205
  Serious: Yes (Hospitalization)
  Sender: FDA-Public Use
  Company Number: None

PATIENT
  Age: 63 Year
  Sex: Female

DRUGS (27)
  1. XELJANZ XR [Suspect]
     Active Substance: TOFACITINIB CITRATE
     Indication: RHEUMATOID ARTHRITIS
     Route: 048
     Dates: start: 20171010
  2. METHOTREXATE. [Concomitant]
     Active Substance: METHOTREXATE
  3. POT CL [Concomitant]
  4. ALLOPURINOL. [Concomitant]
     Active Substance: ALLOPURINOL
  5. LACTULOSE. [Concomitant]
     Active Substance: LACTULOSE
  6. ASPIRIN. [Concomitant]
     Active Substance: ASPIRIN
  7. BACLOFEN. [Concomitant]
     Active Substance: BACLOFEN
  8. TOPIRAMATE. [Concomitant]
     Active Substance: TOPIRAMATE
  9. ATORVASTATIN [Concomitant]
     Active Substance: ATORVASTATIN
  10. KLOR-CON [Suspect]
     Active Substance: POTASSIUM CHLORIDE
  11. RA BEE POLLE [Concomitant]
  12. TRIAMT/HCTZ [Concomitant]
     Active Substance: HYDROCHLOROTHIAZIDE\TRIAMTERENE
  13. AMLODIPINE [Concomitant]
     Active Substance: AMLODIPINE BESYLATE
  14. ATENOLOL. [Concomitant]
     Active Substance: ATENOLOL
  15. BUT/APAP/CAF [Concomitant]
  16. CELECOXIB. [Concomitant]
     Active Substance: CELECOXIB
  17. COENZYME Q10 [Concomitant]
     Active Substance: UBIDECARENONE
  18. ALPRAZOLAM. [Concomitant]
     Active Substance: ALPRAZOLAM
  19. AMLACTIN [Concomitant]
     Active Substance: AMMONIUM LACTATE
  20. LEVOTHYROXIN [Concomitant]
     Active Substance: LEVOTHYROXINE
  21. PANTOPRAZOLE [Concomitant]
     Active Substance: PANTOPRAZOLE
  22. FLUCINONIDE [Concomitant]
  23. METRONIDAZOL [Concomitant]
     Active Substance: METRONIDAZOLE
  24. SYNTHROID [Concomitant]
     Active Substance: LEVOTHYROXINE SODIUM
  25. TRIAMCINOLON [Concomitant]
  26. BUT/ASA/CAF [Concomitant]
  27. FENOFIBRATE. [Concomitant]
     Active Substance: FENOFIBRATE

REACTIONS (2)
  - Gallbladder operation [None]
  - Hernia repair [None]
